FAERS Safety Report 22842487 (Version 2)
Quarter: 2024Q3

REPORT INFORMATION
  Report Type: Spontaneous
  Country: IN (occurrence: IN)
  Receive Date: 20230821
  Receipt Date: 20240909
  Transmission Date: 20241017
  Serious: Yes (Death, Life-Threatening, Hospitalization, Other)
  Sender: JOHNSON AND JOHNSON
  Company Number: IN-MLMSERVICE-20230809-4457414-1

PATIENT
  Sex: Female

DRUGS (1)
  1. ULTRACET [Suspect]
     Active Substance: ACETAMINOPHEN\TRAMADOL HYDROCHLORIDE
     Indication: Product used for unknown indication
     Dosage: 20-25 TABLETS (PARACETAMOL 325 MG + TRAMADOL HYDROCHLORIDE 37.5 MG)
     Route: 065

REACTIONS (8)
  - Intentional overdose [Fatal]
  - Papillary muscle haemorrhage [Fatal]
  - Muscle necrosis [Fatal]
  - Hepatic necrosis [Fatal]
  - Brain oedema [Fatal]
  - Cerebral congestion [Fatal]
  - Generalised oedema [Fatal]
  - Lung consolidation [Fatal]
